FAERS Safety Report 8196423-8 (Version None)
Quarter: 2012Q1

REPORT INFORMATION
  Report Type: 
  Country: None (occurrence: None)
  Receive Date: 20120309
  Receipt Date: 20120306
  Transmission Date: 20120608
  Serious: Yes (Other)
  Sender: FDA-Public Use
  Company Number: US-PFIZER INC-2011316781

PATIENT
  Sex: Male

DRUGS (7)
  1. VIAGRA [Suspect]
     Dosage: UNK
  2. COVERA-HS [Suspect]
     Dosage: UNK
  3. CHANTIX [Suspect]
     Dosage: UNK
  4. LIPITOR [Suspect]
     Dosage: UNK
  5. CELEBREX [Suspect]
     Dosage: UNK
  6. ZOLOFT [Suspect]
     Dosage: UNK
  7. DETROL LA [Suspect]
     Dosage: UNK

REACTIONS (3)
  - RENAL DISORDER [None]
  - BLADDER CANCER [None]
  - HYPERTENSION [None]
